FAERS Safety Report 7287185-7 (Version None)
Quarter: 2011Q1

REPORT INFORMATION
  Report Type: 
  Country: None (occurrence: None)
  Receive Date: 20110211
  Receipt Date: 20110201
  Transmission Date: 20110831
  Serious: Yes (Death, Other)
  Sender: FDA-Public Use
  Company Number: JP-ROCHE-732321

PATIENT
  Sex: Female
  Weight: 51 kg

DRUGS (7)
  1. DIOVAN [Concomitant]
     Route: 048
     Dates: start: 20100209
  2. PEGASYS [Suspect]
     Route: 058
     Dates: start: 20091118
  3. LOCHOL [Concomitant]
     Route: 048
     Dates: start: 20091130
  4. COPEGUS [Suspect]
     Dosage: NOTE: AMOUNT 2.
     Route: 048
     Dates: start: 20091118, end: 20100929
  5. PURSENNID [Concomitant]
     Route: 048
     Dates: start: 20100105
  6. GASLON N [Concomitant]
     Route: 048
     Dates: start: 20100525
  7. EPADEL [Concomitant]
     Route: 048
     Dates: start: 20091228

REACTIONS (3)
  - ANAEMIA [None]
  - SUBARACHNOID HAEMORRHAGE [None]
  - CONSTIPATION [None]
